FAERS Safety Report 8173579-4 (Version None)
Quarter: 2012Q1

REPORT INFORMATION
  Report Type: 
  Country: None (occurrence: None)
  Receive Date: 20120223
  Receipt Date: 20120214
  Transmission Date: 20120608
  Serious: Yes (Other)
  Sender: FDA-Public Use
  Company Number: 2012MA002123

PATIENT
  Age: 47 Year
  Sex: Female

DRUGS (8)
  1. FEVERALL [Suspect]
  2. CLOZARIL [Suspect]
     Indication: SCHIZOPHRENIA
     Dosage: 100 MG; PO
     Route: 048
     Dates: start: 20020212
  3. FLUPENTIXOL [Concomitant]
  4. OLANZAPINE [Concomitant]
  5. ARIPIPRAZOLE [Concomitant]
  6. PIPORTIL DEPOT [Concomitant]
  7. AMISULPRIDE [Concomitant]
  8. QUETIAPINE [Concomitant]

REACTIONS (5)
  - MOOD ALTERED [None]
  - BLOOD PRESSURE DECREASED [None]
  - ELECTROCARDIOGRAM ABNORMAL [None]
  - HYPERTENSION [None]
  - OVERDOSE [None]
